FAERS Safety Report 19891270 (Version 1)
Quarter: 2021Q3

REPORT INFORMATION
  Report Type: Spontaneous
  Country: US (occurrence: US)
  Receive Date: 20210928
  Receipt Date: 20210928
  Transmission Date: 20211014
  Serious: Yes (Death)
  Sender: FDA-Public Use
  Company Number: US-SAMSUNG BIOEPIS-SB-2019-26817

PATIENT
  Sex: Male

DRUGS (5)
  1. IPILIMUMAB [Concomitant]
     Active Substance: IPILIMUMAB
     Indication: METASTATIC MALIGNANT MELANOMA
     Dosage: UNKNOWN
     Route: 065
  2. DABRAFENIB;TRAMETINIB [Concomitant]
     Active Substance: DABRAFENIB\TRAMETINIB
     Indication: METASTASIS
     Dosage: UNKNOWN
     Route: 065
  3. INFLIXIMAB [Suspect]
     Active Substance: INFLIXIMAB
     Indication: COLITIS
     Dosage: UNKNOWN
     Route: 065
  4. PEMBROLIZUMAB. [Concomitant]
     Active Substance: PEMBROLIZUMAB
     Indication: METASTATIC MALIGNANT MELANOMA
     Dosage: UNKNOWN
     Route: 065
  5. VEMURAFENIB. [Concomitant]
     Active Substance: VEMURAFENIB
     Indication: METASTASIS
     Dosage: UNKNOWN
     Route: 065

REACTIONS (2)
  - Off label use [Unknown]
  - Death [Fatal]
